FAERS Safety Report 7603822-9 (Version None)
Quarter: 2011Q3

REPORT INFORMATION
  Report Type: 
  Country: None (occurrence: None)
  Receive Date: 20110712
  Receipt Date: 20110701
  Transmission Date: 20111222
  Serious: Yes (Death, Hospitalization)
  Sender: FDA-Public Use
  Company Number: CN-GLAXOSMITHKLINE-B0728701A

PATIENT
  Age: 50 Year
  Sex: Female

DRUGS (1)
  1. HEPTODIN TABLETS [Suspect]
     Indication: HEPATITIS B
     Dosage: 100MG PER DAY
     Route: 048

REACTIONS (4)
  - ACUTE HEPATIC FAILURE [None]
  - BLOOD BILIRUBIN INCREASED [None]
  - JAUNDICE [None]
  - DRUG INEFFECTIVE [None]
